FAERS Safety Report 4341983-8 (Version None)
Quarter: 2004Q1

REPORT INFORMATION
  Report Type: 
  Country: None (occurrence: None)
  Receive Date: 20040329
  Receipt Date: 20040105
  Transmission Date: 20041129
  Serious: No
  Sender: FDA-Public Use
  Company Number: 03P-163-0246102-00

PATIENT
  Age: 39 Year
  Sex: Female
  Weight: 54.4316 kg

DRUGS (5)
  1. HUMIRA [Suspect]
     Indication: RHEUMATOID ARTHRITIS
     Dosage: 40 MG, 1 IN 2 WK, SUBCUTANEOUS
     Route: 058
     Dates: start: 20031120
  2. PREDNISONE [Concomitant]
  3. ESOMEPRAZOLE [Concomitant]
  4. BUCINDOLOL HYDROCHLORIDE [Concomitant]
  5. ANOVLAR [Concomitant]

REACTIONS (1)
  - RASH [None]
